FAERS Safety Report 6187946-1 (Version None)
Quarter: 2009Q2

REPORT INFORMATION
  Report Type: 
  Country: None (occurrence: None)
  Receive Date: 20090513
  Receipt Date: 20090507
  Transmission Date: 20091009
  Serious: Yes (Death, Hospitalization)
  Sender: FDA-Public Use
  Company Number: US-ROCHE-621971

PATIENT
  Sex: Female
  Weight: 62.1 kg

DRUGS (5)
  1. CAPECITABINE [Suspect]
     Indication: COLORECTAL CANCER
     Dosage: DOSAGE: 500 MG AM AND 1000 MG PM
     Route: 048
     Dates: start: 20080922, end: 20090401
  2. ATENOLOL [Concomitant]
  3. CALCIUM [Concomitant]
  4. LEVOXYL [Concomitant]
  5. M.V.I. [Concomitant]

REACTIONS (5)
  - ANOREXIA [None]
  - DEATH [None]
  - DEHYDRATION [None]
  - DIARRHOEA [None]
  - VOMITING [None]
